FAERS Safety Report 6825994-6 (Version None)
Quarter: 2010Q3

REPORT INFORMATION
  Report Type: 
  Country: None (occurrence: None)
  Receive Date: 20100709
  Receipt Date: 20090721
  Transmission Date: 20110219
  Serious: Yes (Death, Other)
  Sender: FDA-Public Use
  Company Number: US-ASTRAZENECA-2007UW03174

PATIENT
  Sex: Female

DRUGS (7)
  1. SEROQUEL [Suspect]
     Indication: ANXIETY
     Dosage: 100-700 MG
     Route: 048
     Dates: start: 20060501
  2. SEROQUEL [Suspect]
     Indication: INSOMNIA
     Dosage: 100-700 MG
     Route: 048
     Dates: start: 20060501
  3. CYMBALTA [Concomitant]
     Dates: start: 20060101
  4. AMBIEN [Concomitant]
     Route: 048
     Dates: start: 20060101
  5. BUSPAR [Concomitant]
     Route: 048
     Dates: start: 20060101
  6. VISTARIL [Concomitant]
     Route: 048
     Dates: start: 20060501
  7. TYLENOL [Concomitant]
     Indication: PAIN
     Dosage: EVERY 6 HOURS P.R.N
     Dates: start: 20060501

REACTIONS (6)
  - DEATH [None]
  - DIABETIC COMA [None]
  - DIABETIC KETOACIDOSIS [None]
  - HYPERGLYCAEMIA [None]
  - PANCREATITIS [None]
  - TYPE 2 DIABETES MELLITUS [None]
